FAERS Safety Report 13824959 (Version 1)
Quarter: 2017Q3

REPORT INFORMATION
  Report Type: Spontaneous
  Country: JP (occurrence: JP)
  Receive Date: 20170802
  Receipt Date: 20170802
  Transmission Date: 20171127
  Serious: Yes (Hospitalization, Other)
  Sender: FDA-Public Use
  Company Number: JP-PFIZER INC-2017331286

PATIENT
  Age: 9 Decade
  Sex: Male

DRUGS (1)
  1. LYRICA [Suspect]
     Active Substance: PREGABALIN
     Route: 048

REACTIONS (5)
  - Malaise [Recovered/Resolved]
  - Condition aggravated [Unknown]
  - Asthenia [Recovered/Resolved]
  - Dehydration [Recovered/Resolved]
  - Dementia [Unknown]
